FAERS Safety Report 14447960 (Version 1)
Quarter: 2018Q1

REPORT INFORMATION
  Report Type: Spontaneous
  Country: CN (occurrence: CN)
  Receive Date: 20180126
  Receipt Date: 20180126
  Transmission Date: 20180509
  Serious: Yes (Other)
  Sender: FDA-Public Use
  Company Number: CN-BAXALTA-2017BLT000189

PATIENT
  Age: 75 Year
  Sex: Female

DRUGS (1)
  1. HUMAN SERUM ALBUMIN; NG [Suspect]
     Active Substance: ALBUMIN HUMAN
     Indication: LUNG INFECTION
     Dosage: 10 G, 1X A DAY
     Route: 042
     Dates: start: 20160909, end: 20160909

REACTIONS (2)
  - Throat tightness [Recovering/Resolving]
  - Dyspnoea [Recovering/Resolving]

NARRATIVE: CASE EVENT DATE: 20160909
